FAERS Safety Report 14428031 (Version 1)
Quarter: 2018Q1

REPORT INFORMATION
  Report Type: Report from Study
  Country: US (occurrence: US)
  Receive Date: 20180123
  Receipt Date: 20180123
  Transmission Date: 20180509
  Serious: No
  Sender: FDA-Public Use
  Company Number: US-AMGEN-USASL2017159618

PATIENT
  Sex: Female

DRUGS (7)
  1. LOSARTAN POTASSIUM. [Concomitant]
     Active Substance: LOSARTAN POTASSIUM
  2. OMEPRAZOLE. [Concomitant]
     Active Substance: OMEPRAZOLE
  3. LATANOPROST. [Concomitant]
     Active Substance: LATANOPROST
  4. DULOXETINE. [Concomitant]
     Active Substance: DULOXETINE
  5. GLIPIZIDE. [Concomitant]
     Active Substance: GLIPIZIDE
  6. QUETIAPINE FUMARATE. [Concomitant]
     Active Substance: QUETIAPINE FUMARATE
  7. REPATHA [Suspect]
     Active Substance: EVOLOCUMAB
     Indication: HYPERLIPIDAEMIA
     Dosage: 140 MG, Q2WK
     Route: 065

REACTIONS (1)
  - Nasopharyngitis [Not Recovered/Not Resolved]
